FAERS Safety Report 4325586-7 (Version None)
Quarter: 2004Q1

REPORT INFORMATION
  Report Type: 
  Country: None (occurrence: None)
  Receive Date: 20040329
  Receipt Date: 20040212
  Transmission Date: 20041129
  Serious: Yes (Life-Threatening, Hospitalization)
  Sender: FDA-Public Use
  Company Number: 200410443EU

PATIENT
  Age: 22 Year
  Sex: Male
  Weight: 73 kg

DRUGS (2)
  1. INSULIN GLARGINE [Suspect]
     Indication: DIABETES MELLITUS INSULIN-DEPENDENT
     Route: 058
     Dates: start: 20031117, end: 20040301
  2. LISPRO [Suspect]
     Indication: DIABETES MELLITUS INSULIN-DEPENDENT
     Route: 058
     Dates: start: 20020801

REACTIONS (5)
  - COMA [None]
  - DEHYDRATION [None]
  - KETOACIDOSIS [None]
  - TACHYPNOEA [None]
  - TREATMENT NONCOMPLIANCE [None]
